FAERS Safety Report 6500311-X (Version None)
Quarter: 2009Q4

REPORT INFORMATION
  Report Type: 
  Country: None (occurrence: None)
  Receive Date: 20091216
  Receipt Date: 20091211
  Transmission Date: 20100525
  Serious: Yes (Death)
  Sender: FDA-Public Use
  Company Number: FR-ROCHE-674126

PATIENT
  Sex: Male

DRUGS (3)
  1. CAPECITABINE [Suspect]
     Indication: GASTRIC CANCER
     Dosage: CYCLE 1: TOTAL DOSE: 159600 MG; CYCLE 2: TOTAL DOSE: 95200 MG
     Route: 065
     Dates: start: 20080813, end: 20080924
  2. EPIRUBICIN HCL [Suspect]
     Indication: GASTRIC CANCER
     Dosage: CYCLE 1: TOTAL DOSE:300MG; CYCLE 2: TOTAL DOSE: 200MG
     Route: 065
     Dates: start: 20080813, end: 20080924
  3. CISPLATIN [Suspect]
     Indication: GASTRIC CANCER
     Dosage: CYCLE 1: TOTAL DOSE:360MG; CYCLE 2: TOTAL DOSE: 240MG
     Route: 065
     Dates: start: 20080813, end: 20080924

REACTIONS (1)
  - ISCHAEMIC STROKE [None]
